FAERS Safety Report 9501028 (Version 1)
Quarter: 2013Q1

REPORT INFORMATION
  Report Type: Spontaneous
  Country: US (occurrence: None)
  Receive Date: 20130116
  Receipt Date: 20130116
  Transmission Date: 20140127
  Serious: No
  Sender: FDA-Public Use
  Company Number: 1208USA003367

PATIENT
  Sex: Male

DRUGS (1)
  1. INVANZ [Suspect]
     Indication: CELLULITIS
     Dates: end: 20120606

REACTIONS (2)
  - Hypersensitivity [None]
  - Rash generalised [None]
